FAERS Safety Report 9456518 (Version 3)
Quarter: 2013Q3

REPORT INFORMATION
  Report Type: Spontaneous
  Country: JP (occurrence: JP)
  Receive Date: 20130813
  Receipt Date: 20130923
  Transmission Date: 20140515
  Serious: No
  Sender: FDA-Public Use
  Company Number: JP-PFIZER INC-2013233229

PATIENT
  Sex: Male

DRUGS (4)
  1. METHOTREXATE SODIUM [Suspect]
     Dosage: UNK
     Route: 042
  2. DOXORUBICIN HCL [Suspect]
     Dosage: UNK
  3. CISPLATIN [Suspect]
     Dosage: UNK
  4. VINBLASTINE SULFATE [Suspect]
     Dosage: UNK

REACTIONS (1)
  - Neutrophil count decreased [Unknown]
